FAERS Safety Report 9624722 (Version 3)
Quarter: 2014Q2

REPORT INFORMATION
  Report Type: Spontaneous
  Country: US (occurrence: None)
  Receive Date: 20131010
  Receipt Date: 20140401
  Transmission Date: 20141212
  Serious: Yes (Death)
  Sender: FDA-Public Use
  Company Number: 2013-US-001570

PATIENT
  Age: 79 Year
  Sex: Female

DRUGS (2)
  1. XYREM [Suspect]
     Indication: NARCOLEPSY
     Route: 048
     Dates: start: 20070921, end: 200712
  2. XYREM [Suspect]
     Indication: SOMNOLENCE
     Route: 048
     Dates: start: 20070921, end: 200712

REACTIONS (6)
  - Cardio-respiratory arrest [None]
  - Atrial fibrillation [None]
  - Pneumonia [None]
  - Bronchitis [None]
  - Pulmonary oedema [None]
  - Pulmonary congestion [None]
